FAERS Safety Report 7203816-1 (Version None)
Quarter: 2010Q4

REPORT INFORMATION
  Report Type: 
  Country: None (occurrence: None)
  Receive Date: 20101230
  Receipt Date: 20101217
  Transmission Date: 20110411
  Serious: Yes (Other)
  Sender: FDA-Public Use
  Company Number: DE-ELI_LILLY_AND_COMPANY-DE201012004678

PATIENT
  Age: 69 Year
  Sex: Male

DRUGS (5)
  1. CIALIS [Suspect]
     Indication: ERECTILE DYSFUNCTION
  2. CAVERJECT [Concomitant]
     Indication: ERECTILE DYSFUNCTION
     Dates: start: 20101205
  3. ASPIRIN [Concomitant]
  4. LEVOTHYROXINE SODIUM [Concomitant]
  5. IRBESARTAN [Concomitant]

REACTIONS (4)
  - CONTUSION [None]
  - FALL [None]
  - FOREIGN BODY IN EYE [None]
  - SYNCOPE [None]
